FAERS Safety Report 9274697 (Version 1)
Quarter: 2013Q2

REPORT INFORMATION
  Report Type: Spontaneous
  Country: US (occurrence: None)
  Receive Date: 20130430
  Receipt Date: 20130430
  Transmission Date: 20140414
  Serious: Yes (Other)
  Sender: FDA-Public Use
  Company Number: None

PATIENT
  Age: 55 Year
  Sex: Female
  Weight: 82.56 kg

DRUGS (1)
  1. DIOVAN 80 MG [Suspect]
     Indication: HYPERTENSION
     Route: 048
     Dates: start: 20130330, end: 20130416

REACTIONS (4)
  - Fatigue [None]
  - Activities of daily living impaired [None]
  - Somnolence [None]
  - Dizziness [None]
